FAERS Safety Report 5023527-0 (Version None)
Quarter: 2006Q2

REPORT INFORMATION
  Report Type: 
  Country: None (occurrence: None)
  Receive Date: 20060612
  Receipt Date: 20060602
  Transmission Date: 20061013
  Serious: Yes (Hospitalization)
  Sender: FDA-Public Use
  Company Number: FR-GLAXOSMITHKLINE-B0426282A

PATIENT
  Age: 54 Year
  Sex: Male

DRUGS (5)
  1. TRIZIVIR [Suspect]
     Indication: HIV INFECTION
     Dosage: 2TAB PER DAY
     Route: 048
     Dates: start: 20060106, end: 20060203
  2. KIVEXA [Suspect]
     Indication: HIV INFECTION
     Route: 048
     Dates: start: 20060203, end: 20060210
  3. ZECLAR [Concomitant]
     Indication: MYCOBACTERIUM KANSASII INFECTION
     Route: 065
     Dates: start: 20060101
  4. NORVIR [Concomitant]
     Indication: HIV INFECTION
     Route: 065
     Dates: start: 20060203
  5. REYATAZ [Concomitant]
     Indication: HIV INFECTION
     Route: 065
     Dates: start: 20060203

REACTIONS (5)
  - BONE MARROW FAILURE [None]
  - HISTIOCYTOSIS HAEMATOPHAGIC [None]
  - MYCOBACTERIUM KANSASII INFECTION [None]
  - PYREXIA [None]
  - RASH [None]
